FAERS Safety Report 9499756 (Version 1)
Quarter: 2013Q3

REPORT INFORMATION
  Report Type: Spontaneous
  Country: US (occurrence: None)
  Receive Date: 20130904
  Receipt Date: 20130904
  Transmission Date: 20140515
  Serious: Yes (Death, Hospitalization)
  Sender: FDA-Public Use
  Company Number: None

PATIENT
  Age: 83 Year
  Sex: Male
  Weight: 62.6 kg

DRUGS (15)
  1. ARANESP [Suspect]
     Indication: NEPHROGENIC ANAEMIA
     Dates: start: 20130715
  2. ARANESP [Suspect]
     Indication: HAEMOGLOBIN DECREASED
     Dates: start: 20130715
  3. ARANESP [Suspect]
     Indication: MYELODYSPLASTIC SYNDROME
     Dates: start: 20130715
  4. METROPROLOL [Concomitant]
  5. SUCCUBATE [Concomitant]
  6. FINASTERIDE [Concomitant]
  7. AMLODIPINE [Concomitant]
  8. PLAVIN [Concomitant]
  9. FLOMAX [Concomitant]
  10. ALLOPRUINOL [Concomitant]
  11. LIPITOR [Concomitant]
  12. IBANDRONATE [Concomitant]
  13. SENSIPAR [Concomitant]
  14. CENTRUM [Concomitant]
  15. MIRALAX [Concomitant]

REACTIONS (6)
  - Chest pain [None]
  - Headache [None]
  - Cardiomegaly [None]
  - Cardio-respiratory arrest [None]
  - Hypertension [None]
  - Cerebrovascular accident [None]
